FAERS Safety Report 5044030-8 (Version None)
Quarter: 2006Q2

REPORT INFORMATION
  Report Type: 
  Country: None (occurrence: None)
  Receive Date: 20060601
  Receipt Date: 20060331
  Transmission Date: 20061013
  Serious: No
  Sender: FDA-Public Use
  Company Number: US200603007309

PATIENT
  Age: 58 Year
  Sex: Female
  Weight: 68 kg

DRUGS (3)
  1. CYMBALTA [Suspect]
     Indication: DEPRESSION
     Dosage: 30 MG, DAILY (1/D)
     Dates: start: 20051101
  2. LIPITOR [Concomitant]
  3. SYNTHROID [Concomitant]

REACTIONS (4)
  - BLOOD THYROID STIMULATING HORMONE DECREASED [None]
  - DRY SKIN [None]
  - HAIR TEXTURE ABNORMAL [None]
  - HYPOTRICHOSIS [None]
